FAERS Safety Report 14508180 (Version 1)
Quarter: 2018Q1

REPORT INFORMATION
  Report Type: Spontaneous
  Country: FR (occurrence: FR)
  Receive Date: 20180208
  Receipt Date: 20180208
  Transmission Date: 20180509
  Serious: Yes (Hospitalization)
  Sender: FDA-Public Use
  Company Number: FR-CONCORDIA PHARMACEUTICALS INC.-E2B_00009785

PATIENT
  Age: 79 Year
  Sex: Female
  Weight: 75.1 kg

DRUGS (8)
  1. BISOPROLOL (FUMARATE ACIDE DE) [Concomitant]
     Active Substance: BISOPROLOL FUMARATE
     Route: 048
  2. DIGOXIN. [Suspect]
     Active Substance: DIGOXIN
     Indication: ATRIAL FIBRILLATION
     Route: 048
     Dates: start: 20171230, end: 20180113
  3. XARELTO [Concomitant]
     Active Substance: RIVAROXABAN
     Route: 048
  4. AMLODIPINE [Concomitant]
     Active Substance: AMLODIPINE BESYLATE
     Route: 048
  5. LASILIX FAIBLE 20 MG, COMPRIM? [Concomitant]
     Active Substance: FUROSEMIDE
     Route: 048
  6. LIPTRUZET 10 MG/10 MG, COMPRIM? PELLICUL? [Concomitant]
     Route: 048
  7. SPIRONOLACTONE. [Concomitant]
     Active Substance: SPIRONOLACTONE
     Route: 048
  8. ENTRESTO 97 MG/103 MG, COMPRIM? PELLICUL? [Concomitant]
     Route: 048

REACTIONS (4)
  - Cardioactive drug level increased [Recovered/Resolved]
  - Vomiting [Recovered/Resolved]
  - Decreased appetite [Recovered/Resolved]
  - Dizziness [Recovered/Resolved]

NARRATIVE: CASE EVENT DATE: 201801
